FAERS Safety Report 5719554-8 (Version None)
Quarter: 2008Q2

REPORT INFORMATION
  Report Type: 
  Country: None (occurrence: None)
  Receive Date: 20080423
  Receipt Date: 20070310
  Transmission Date: 20081010
  Serious: Yes (Death)
  Sender: FDA-Public Use
  Company Number: 236396

PATIENT
  Age: 30 Year
  Sex: Female

DRUGS (2)
  1. AVASTIN [Suspect]
     Indication: NEUROBLASTOMA
  2. CAMPTOSAR [Suspect]
     Indication: NEUROBLASTOMA

REACTIONS (1)
  - CEREBROVASCULAR ACCIDENT [None]
